FAERS Safety Report 4714452-0 (Version None)
Quarter: 2005Q3

REPORT INFORMATION
  Report Type: 
  Country: None (occurrence: None)
  Receive Date: 20050714
  Receipt Date: 20050617
  Transmission Date: 20060218
  Serious: Yes (Hospitalization, Other)
  Sender: FDA-Public Use
  Company Number: PHBS2005PE08879

PATIENT
  Age: 60 Year
  Sex: Male

DRUGS (3)
  1. TRILEPTAL [Suspect]
     Indication: DIABETIC NEUROPATHY
     Dosage: 300 MG, BID
     Route: 048
     Dates: start: 20050301, end: 20050301
  2. TRILEPTAL [Suspect]
     Dosage: 300 MG/D
     Route: 048
  3. PROPRANOLOL [Concomitant]

REACTIONS (3)
  - HEPATIC CIRRHOSIS [None]
  - HEPATIC ENCEPHALOPATHY [None]
  - LIVER DISORDER [None]
